FAERS Safety Report 6221608-7 (Version None)
Quarter: 2009Q2

REPORT INFORMATION
  Report Type: 
  Country: None (occurrence: None)
  Receive Date: 20090608
  Receipt Date: 20090527
  Transmission Date: 20091009
  Serious: Yes (Death, Hospitalization)
  Sender: FDA-Public Use
  Company Number: GR-WYE-H09555209

PATIENT
  Age: 73 Year

DRUGS (2)
  1. TYGACIL [Suspect]
     Indication: KLEBSIELLA BACTERAEMIA
     Dosage: 100 MG LOADING DOSE FOLLOWED BY 50 MG EVERY 12 HOURS INTRAVENOUS
     Route: 042
  2. COLISTIN (COLISTIN) [Concomitant]

REACTIONS (4)
  - BACTERAEMIA [None]
  - NO THERAPEUTIC RESPONSE [None]
  - PROTEUS INFECTION [None]
  - SUPERINFECTION [None]
